FAERS Safety Report 16013870 (Version 1)
Quarter: 2019Q1

REPORT INFORMATION
  Report Type: Spontaneous
  Country: US (occurrence: US)
  Receive Date: 20190227
  Receipt Date: 20190227
  Transmission Date: 20190418
  Serious: Yes (Death, Other)
  Sender: FDA-Public Use
  Company Number: US-ELI_LILLY_AND_COMPANY-US201902010340

PATIENT
  Age: 75 Year
  Sex: Female

DRUGS (2)
  1. AMBRISENTAN [Suspect]
     Active Substance: AMBRISENTAN
     Indication: PULMONARY ARTERIAL HYPERTENSION
     Dosage: 10 MG, DAILY
     Route: 065
     Dates: start: 20171221, end: 20190212
  2. ADCIRCA [Suspect]
     Active Substance: TADALAFIL
     Indication: PULMONARY ARTERIAL HYPERTENSION
     Dosage: 40 MG, BID
     Route: 065
     Dates: start: 20180118

REACTIONS (5)
  - Ulcer haemorrhage [Not Recovered/Not Resolved]
  - Death [Fatal]
  - Dementia [Not Recovered/Not Resolved]
  - Expired product administered [Unknown]
  - Overdose [Unknown]

NARRATIVE: CASE EVENT DATE: 20180118
